FAERS Safety Report 5013079-3 (Version None)
Quarter: 2006Q2

REPORT INFORMATION
  Report Type: 
  Country: None (occurrence: None)
  Receive Date: 20060530
  Receipt Date: 20060215
  Transmission Date: 20061013
  Serious: No
  Sender: FDA-Public Use
  Company Number: US-GLAXOSMITHKLINE-A0593882A

PATIENT
  Age: 66 Year
  Sex: Female

DRUGS (5)
  1. WELLBUTRIN XL [Suspect]
     Indication: DEPRESSION
     Dosage: 450MG PER DAY
     Route: 048
     Dates: start: 20060124
  2. WELLBUTRIN [Suspect]
     Indication: DEPRESSION
     Route: 048
  3. LEXAPRO [Concomitant]
  4. LOPRESSOR [Concomitant]
  5. ZETIA [Concomitant]

REACTIONS (8)
  - CONSTIPATION [None]
  - DIZZINESS [None]
  - DRY MOUTH [None]
  - FATIGUE [None]
  - INSOMNIA [None]
  - OVERDOSE [None]
  - SOMNOLENCE [None]
  - WEIGHT INCREASED [None]
